FAERS Safety Report 25900515 (Version 1)
Quarter: 2025Q4

REPORT INFORMATION
  Report Type: Spontaneous
  Country: US (occurrence: None)
  Receive Date: 20251008
  Receipt Date: 20251008
  Transmission Date: 20260118
  Serious: Yes (Other)
  Sender: FDA-CTU
  Company Number: None

PATIENT
  Age: 75 Year
  Sex: Female

DRUGS (1)
  1. LENALIDOMIDE [Suspect]
     Active Substance: LENALIDOMIDE
     Indication: Paranasal sinus and nasal cavity malignant neoplasm
     Dosage: 15MG CYCLIC ?

REACTIONS (2)
  - Urinary tract infection [None]
  - Therapy interrupted [None]
